FAERS Safety Report 5381682-7 (Version None)
Quarter: 2007Q2

REPORT INFORMATION
  Report Type: 
  Country: None (occurrence: None)
  Receive Date: 20070629
  Receipt Date: 20061004
  Transmission Date: 20071010
  Serious: Yes (Other)
  Sender: FDA-Public Use
  Company Number: 2006100687

PATIENT
  Age: 87 Year
  Sex: Female
  Weight: 58.9676 kg

DRUGS (7)
  1. ZOLOFT [Suspect]
     Indication: DEPRESSION
     Dosage: 50 MG (50 MG, 1 IN 1 D)
     Dates: end: 20060801
  2. PAXIL [Suspect]
  3. ATENOLOL [Concomitant]
  4. SYNTHROID [Concomitant]
  5. CELEBREX [Concomitant]
  6. HYDROCHLOROTHIAZIDE [Concomitant]
  7. RANTIDINE (RANTIDINE) [Concomitant]

REACTIONS (4)
  - DRUG INEFFECTIVE [None]
  - MEMORY IMPAIRMENT [None]
  - PARANOIA [None]
  - WEIGHT DECREASED [None]
